FAERS Safety Report 25202868 (Version 1)
Quarter: 2025Q2

REPORT INFORMATION
  Report Type: Report from Study
  Country: DO (occurrence: DO)
  Receive Date: 20250416
  Receipt Date: 20250416
  Transmission Date: 20250717
  Serious: Yes (Death)
  Sender: TOLMAR
  Company Number: DO-Tolmar-TLM-2025-00150

PATIENT
  Age: 84 Year
  Sex: Male

DRUGS (5)
  1. ELIGARD [Suspect]
     Active Substance: LEUPROLIDE ACETATE
     Indication: Prostate cancer
     Route: 058
     Dates: start: 2020
  2. ELIGARD [Suspect]
     Active Substance: LEUPROLIDE ACETATE
     Route: 058
     Dates: start: 20231204
  3. ELIGARD [Suspect]
     Active Substance: LEUPROLIDE ACETATE
     Route: 058
     Dates: start: 20230425
  4. ELIGARD [Suspect]
     Active Substance: LEUPROLIDE ACETATE
     Indication: Prostate cancer
  5. Candelsal 2.5 [Concomitant]
     Indication: Product used for unknown indication

REACTIONS (2)
  - Death [Fatal]
  - Prostatic specific antigen increased [Recovering/Resolving]
